FAERS Safety Report 6973778-0 (Version None)
Quarter: 2010Q3

REPORT INFORMATION
  Report Type: 
  Country: None (occurrence: None)
  Receive Date: 20100909
  Receipt Date: 20100831
  Transmission Date: 20110219
  Serious: Yes (Hospitalization)
  Sender: FDA-Public Use
  Company Number: A0852496A

PATIENT
  Sex: Male
  Weight: 150 kg

DRUGS (1)
  1. AVANDIA [Suspect]
     Dosage: 4MG PER DAY
     Route: 048
     Dates: start: 19950101, end: 20080101

REACTIONS (2)
  - ATRIAL FIBRILLATION [None]
  - CARDIAC FAILURE [None]
